FAERS Safety Report 20714026 (Version 1)
Quarter: 2022Q2

REPORT INFORMATION
  Report Type: Spontaneous
  Country: BE (occurrence: None)
  Receive Date: 20220415
  Receipt Date: 20220415
  Transmission Date: 20220721
  Serious: Yes (Other)
  Sender: FDA-Public Use
  Company Number: BE-FRESENIUS KABI-FK202204365

PATIENT

DRUGS (1)
  1. OXALIPLATIN [Suspect]
     Active Substance: OXALIPLATIN
     Indication: Product used for unknown indication
     Dosage: 200 MG/40 ML
     Route: 065
     Dates: start: 202112

REACTIONS (4)
  - Neuropathy peripheral [Unknown]
  - Pharyngeal dyskinesia [Unknown]
  - Gait disturbance [Unknown]
  - Dyskinesia [Unknown]
